FAERS Safety Report 8929897 (Version 1)
Quarter: 2012Q4

REPORT INFORMATION
  Report Type: 
  Country: CA (occurrence: CA)
  Receive Date: 20121128
  Receipt Date: 20121128
  Transmission Date: 20130627
  Serious: Yes (Other)
  Sender: FDA-Public Use
  Company Number: CA-ROCHE-1160351

PATIENT
  Sex: Female

DRUGS (4)
  1. XOLAIR [Suspect]
     Indication: ASTHMA
     Route: 065
     Dates: start: 20070120
  2. XOLAIR [Suspect]
     Route: 065
     Dates: start: 20070205
  3. XOLAIR [Suspect]
     Route: 065
     Dates: start: 20070305
  4. PREDNISONE [Concomitant]

REACTIONS (18)
  - Asthma [Unknown]
  - Injection site bruising [Unknown]
  - Malaise [Unknown]
  - Sinus congestion [Unknown]
  - Discomfort [Unknown]
  - Productive cough [Unknown]
  - White blood cell count increased [Unknown]
  - Muscular weakness [Unknown]
  - Arthralgia [Unknown]
  - Pain [Unknown]
  - Hypersensitivity [Unknown]
  - Fatigue [Unknown]
  - Headache [Unknown]
  - Influenza [Unknown]
  - Injection site reaction [Unknown]
  - Nausea [Unknown]
  - Erythema [Unknown]
  - Drug ineffective [Unknown]
